FAERS Safety Report 11880549 (Version 3)
Quarter: 2016Q1

REPORT INFORMATION
  Report Type: Report from Study
  Country: US (occurrence: US)
  Receive Date: 20151230
  Receipt Date: 20160125
  Transmission Date: 20160526
  Serious: Yes (Other)
  Sender: FDA-Public Use
  Company Number: US-BAXALTA-2015BLT003628

PATIENT
  Age: 60 Year
  Sex: Female
  Weight: 81 kg

DRUGS (3)
  1. ISOSORBIDE. [Suspect]
     Active Substance: ISOSORBIDE
     Indication: CORONARY ARTERY OCCLUSION
     Dosage: 1 TAB 1X A DAY
     Route: 048
     Dates: start: 201511
  2. GAMMAGARD LIQUID [Suspect]
     Active Substance: HUMAN IMMUNOGLOBULIN G
     Indication: IMMUNODEFICIENCY COMMON VARIABLE
     Dosage: 30 G, ^21-22 DRIPS/MIN^, EVERY 4 WK
     Route: 042
     Dates: start: 20151103
  3. GAMMAGARD LIQUID [Suspect]
     Active Substance: HUMAN IMMUNOGLOBULIN G
     Indication: PRIMARY IMMUNODEFICIENCY SYNDROME
     Dosage: UNK
     Route: 065
     Dates: start: 20140703

REACTIONS (7)
  - Catheter site haemorrhage [Recovered/Resolved]
  - Condition aggravated [Unknown]
  - Headache [Not Recovered/Not Resolved]
  - Anaemia [Recovering/Resolving]
  - Ear pain [Recovering/Resolving]
  - Post procedural haemorrhage [Recovered/Resolved]
  - Bronchitis [Recovering/Resolving]

NARRATIVE: CASE EVENT DATE: 201511
